FAERS Safety Report 23033859 (Version 2)
Quarter: 2023Q4

REPORT INFORMATION
  Report Type: Spontaneous
  Country: IT (occurrence: IT)
  Receive Date: 20231005
  Receipt Date: 20231114
  Transmission Date: 20240110
  Serious: Yes (Death, Hospitalization)
  Sender: FDA-Public Use
  Company Number: None

PATIENT
  Age: 66 Year
  Sex: Male

DRUGS (1)
  1. METFORMIN [Suspect]
     Active Substance: METFORMIN HYDROCHLORIDE
     Indication: Diabetes mellitus
     Dosage: UNSPECIFIED DOSAGE ORAL HYPOGLYCEMIC
     Route: 048

REACTIONS (3)
  - Dyspnoea [Fatal]
  - Lactic acidosis [Fatal]
  - Bradycardia [Fatal]

NARRATIVE: CASE EVENT DATE: 20230919
